FAERS Safety Report 13355670 (Version 1)
Quarter: 2017Q1

REPORT INFORMATION
  Report Type: Spontaneous
  Country: US (occurrence: US)
  Receive Date: 20170321
  Receipt Date: 20170321
  Transmission Date: 20170429
  Serious: No
  Sender: FDA-Public Use
  Company Number: US-BAUSCH-BL-2016-012600

PATIENT
  Sex: Female

DRUGS (3)
  1. RENOVA [Suspect]
     Active Substance: TRETINOIN
     Indication: THERAPEUTIC SKIN CARE TOPICAL
  2. TRETINOIN 0.1% [Concomitant]
     Indication: THERAPEUTIC SKIN CARE TOPICAL
     Dosage: ON JAW AREA AND THE TOP OF HER LIP
     Route: 065
     Dates: start: 2007
  3. RENOVA [Suspect]
     Active Substance: TRETINOIN
     Indication: SKIN WRINKLING
     Route: 065
     Dates: start: 201603, end: 20160520

REACTIONS (3)
  - Skin discolouration [Recovering/Resolving]
  - Rash macular [Unknown]
  - Blister [Recovering/Resolving]

NARRATIVE: CASE EVENT DATE: 20160520
